FAERS Safety Report 5485365-4 (Version None)
Quarter: 2007Q4

REPORT INFORMATION
  Report Type: 
  Country: None (occurrence: None)
  Receive Date: 20071015
  Receipt Date: 20071004
  Transmission Date: 20080405
  Serious: Yes (Other)
  Sender: FDA-Public Use
  Company Number: DE-BRISTOL-MYERS SQUIBB COMPANY-13930243

PATIENT

DRUGS (2)
  1. LOPIRIN [Suspect]
  2. GLUCOPHAGE [Suspect]

REACTIONS (1)
  - PANCREATITIS NECROTISING [None]
